FAERS Safety Report 5319567-4 (Version None)
Quarter: 2007Q2

REPORT INFORMATION
  Report Type: 
  Country: None (occurrence: None)
  Receive Date: 20070508
  Receipt Date: 20070426
  Transmission Date: 20071010
  Serious: Yes (Other)
  Sender: FDA-Public Use
  Company Number: FR-PFIZER INC-2007034440

PATIENT
  Sex: Female

DRUGS (2)
  1. LYRICA [Suspect]
     Indication: BACK PAIN
  2. EFFEXOR [Concomitant]
     Indication: DEPRESSION

REACTIONS (5)
  - DIZZINESS [None]
  - DYSKINESIA [None]
  - FLUID RETENTION [None]
  - TREMOR [None]
  - WEIGHT INCREASED [None]
